FAERS Safety Report 15792464 (Version 1)
Quarter: 2019Q1

REPORT INFORMATION
  Report Type: Spontaneous
  Country: CN (occurrence: CN)
  Receive Date: 20190107
  Receipt Date: 20190107
  Transmission Date: 20190417
  Serious: Yes (Death)
  Sender: FDA-Public Use
  Company Number: CN-ROCHE-2239056

PATIENT
  Age: 53 Year
  Sex: Male

DRUGS (11)
  1. ZOLEDRONIC ACID [Concomitant]
     Active Substance: ZOLEDRONIC ACID
     Indication: LUNG ADENOCARCINOMA
  2. CARBOPLATIN. [Concomitant]
     Active Substance: CARBOPLATIN
     Dosage: AUC=5
     Route: 065
     Dates: start: 20170516
  3. ICOTINIB [Concomitant]
     Active Substance: ICOTINIB
     Indication: LUNG ADENOCARCINOMA
     Route: 065
     Dates: start: 20170725
  4. THYROXINE [Concomitant]
     Active Substance: LEVOTHYROXINE
     Route: 065
  5. BEVACIZUMAB. [Suspect]
     Active Substance: BEVACIZUMAB
     Indication: LUNG ADENOCARCINOMA
     Route: 065
     Dates: start: 20160725, end: 20161117
  6. CARBOPLATIN. [Concomitant]
     Active Substance: CARBOPLATIN
     Indication: LUNG ADENOCARCINOMA
     Route: 065
     Dates: start: 20160725, end: 20161117
  7. PACLITAXEL. [Concomitant]
     Active Substance: PACLITAXEL
     Route: 065
     Dates: start: 20170516
  8. PACLITAXEL. [Concomitant]
     Active Substance: PACLITAXEL
     Indication: LUNG ADENOCARCINOMA
     Route: 065
     Dates: start: 20160725, end: 20161117
  9. PEMETREXED. [Concomitant]
     Active Substance: PEMETREXED
     Indication: LUNG ADENOCARCINOMA
     Route: 065
     Dates: start: 20161208
  10. CARBOPLATIN. [Concomitant]
     Active Substance: CARBOPLATIN
     Route: 065
     Dates: start: 20170613
  11. PACLITAXEL. [Concomitant]
     Active Substance: PACLITAXEL
     Route: 065
     Dates: start: 20170613

REACTIONS (4)
  - Death [Fatal]
  - Hyperthermia [Unknown]
  - Bone pain [Unknown]
  - Arthralgia [Unknown]

NARRATIVE: CASE EVENT DATE: 20171105
